FAERS Safety Report 11635608 (Version 1)
Quarter: 2015Q4

REPORT INFORMATION
  Report Type: Spontaneous
  Country: US (occurrence: US)
  Receive Date: 20151016
  Receipt Date: 20151016
  Transmission Date: 20160304
  Serious: No
  Sender: FDA-Public Use
  Company Number: US-PFIZER INC-2015332751

PATIENT
  Age: 16 Year
  Sex: Male
  Weight: 66 kg

DRUGS (3)
  1. AZITHROMYCIN [Suspect]
     Active Substance: AZITHROMYCIN ANHYDROUS
     Indication: NASAL CONGESTION
  2. AZITHROMYCIN [Suspect]
     Active Substance: AZITHROMYCIN ANHYDROUS
     Indication: COUGH
     Dosage: ONE PILL FOR THE REMAINING DAYS, TAKING THE PRODUCT AROUND LUNCH TIME
  3. AZITHROMYCIN [Suspect]
     Active Substance: AZITHROMYCIN ANHYDROUS
     Indication: OROPHARYNGEAL PAIN
     Dosage: 2 PILLS FIRST DAY, TAKING THE PRODUCT AROUND LUNCH TIME
     Dates: start: 20150921

REACTIONS (1)
  - Drug ineffective [Unknown]
